FAERS Safety Report 4758734-5 (Version None)
Quarter: 2005Q3

REPORT INFORMATION
  Report Type: 
  Country: None (occurrence: None)
  Receive Date: 20050831
  Receipt Date: 20050831
  Transmission Date: 20060218
  Serious: Yes (Other)
  Sender: FDA-Public Use
  Company Number: None

PATIENT
  Sex: Male
  Weight: 67.1324 kg

DRUGS (2)
  1. FENTANYL [Suspect]
  2. FENTANYL [Suspect]

REACTIONS (4)
  - ANXIETY [None]
  - DISORIENTATION [None]
  - HALLUCINATION, VISUAL [None]
  - THERAPEUTIC RESPONSE UNEXPECTED WITH DRUG SUBSTITUTION [None]
